FAERS Safety Report 11467381 (Version 5)
Quarter: 2016Q1

REPORT INFORMATION
  Report Type: Spontaneous
  Country: CA (occurrence: CA)
  Receive Date: 20150908
  Receipt Date: 20160216
  Transmission Date: 20160525
  Serious: Yes (Hospitalization, Other)
  Sender: FDA-Public Use
  Company Number: CA-ROCHE-1631126

PATIENT
  Age: 72 Year
  Sex: Male

DRUGS (10)
  1. AVAMYS [Concomitant]
     Active Substance: FLUTICASONE FUROATE
  2. XOLAIR [Suspect]
     Active Substance: OMALIZUMAB
     Route: 058
     Dates: start: 20150902
  3. SPIRIVA [Concomitant]
     Active Substance: TIOTROPIUM BROMIDE MONOHYDRATE
  4. XOLAIR [Suspect]
     Active Substance: OMALIZUMAB
     Indication: ASTHMA
     Route: 058
     Dates: start: 20140903
  5. XOLAIR [Suspect]
     Active Substance: OMALIZUMAB
     Route: 058
     Dates: start: 20150305
  6. XOLAIR [Suspect]
     Active Substance: OMALIZUMAB
     Route: 058
     Dates: start: 20141015
  7. XOLAIR [Suspect]
     Active Substance: OMALIZUMAB
     Route: 058
     Dates: start: 20160205
  8. SYMBICORT [Concomitant]
     Active Substance: BUDESONIDE\FORMOTEROL FUMARATE DIHYDRATE
  9. VENTOLIN [Concomitant]
     Active Substance: ALBUTEROL SULFATE
  10. XOLAIR [Suspect]
     Active Substance: OMALIZUMAB
     Route: 058
     Dates: start: 20141126

REACTIONS (16)
  - Seizure [Unknown]
  - Lower respiratory tract infection [Unknown]
  - Pruritus generalised [Unknown]
  - Drug ineffective [Unknown]
  - Heart rate increased [Unknown]
  - Fall [Unknown]
  - Blood pressure systolic increased [Unknown]
  - Weight decreased [Unknown]
  - Respiratory rate increased [Unknown]
  - Type 2 diabetes mellitus [Unknown]
  - Pruritus [Unknown]
  - Respiratory disorder [Unknown]
  - Pulmonary congestion [Unknown]
  - Hypoglycaemia [Unknown]
  - Wheezing [Unknown]
  - Poor quality sleep [Unknown]

NARRATIVE: CASE EVENT DATE: 20140903
